FAERS Safety Report 9686196 (Version 2)
Quarter: 2013Q4

REPORT INFORMATION
  Report Type: Spontaneous
  Country: US (occurrence: US)
  Receive Date: 20131113
  Receipt Date: 20131113
  Transmission Date: 20140711
  Serious: No
  Sender: FDA-Public Use
  Company Number: US-CUBIST PHARMACEUTICAL, INC.-2012CBST000026

PATIENT
  Sex: 0

DRUGS (4)
  1. CUBICIN [Suspect]
     Indication: INTERVERTEBRAL DISCITIS
     Dosage: 7 MG/KG, QD
     Route: 042
     Dates: start: 20121121, end: 20121212
  2. CUBICIN [Suspect]
     Indication: OFF LABEL USE
     Dosage: 450 MG, QD
     Route: 042
     Dates: start: 20121121, end: 20121212
  3. KLONOPIN [Concomitant]
     Indication: PRODUCT USED FOR UNKNOWN INDICATION
     Dosage: 1 MG, QD
     Route: 065
  4. CYMBALTA [Concomitant]
     Indication: PRODUCT USED FOR UNKNOWN INDICATION
     Dosage: 30 MG, TID
     Route: 065

REACTIONS (3)
  - Malaise [Unknown]
  - Insomnia [Recovering/Resolving]
  - Decreased appetite [Recovering/Resolving]
